FAERS Safety Report 6830832-1 (Version None)
Quarter: 2010Q3

REPORT INFORMATION
  Report Type: 
  Country: None (occurrence: None)
  Receive Date: 20100709
  Receipt Date: 20100709
  Transmission Date: 20110219
  Serious: Yes (Life-Threatening, Hospitalization)
  Sender: FDA-Public Use
  Company Number: None

PATIENT
  Age: 56 Year
  Sex: Male

DRUGS (2)
  1. HYDROCODONE BITARTRATE AND ACETAMINOPHEN [Suspect]
     Dosage: 100 TAB ONCE PO
     Route: 048
     Dates: start: 20100101, end: 20100101
  2. GLIPIZIDE [Suspect]
     Dosage: 100 TAB ONCE PO
     Route: 048
     Dates: start: 20100101, end: 20100101

REACTIONS (2)
  - INTENTIONAL OVERDOSE [None]
  - RENAL FAILURE ACUTE [None]
